FAERS Safety Report 9101684 (Version 2)
Quarter: 2013Q2

REPORT INFORMATION
  Report Type: Spontaneous
  Country: US (occurrence: US)
  Receive Date: 20130218
  Receipt Date: 20130614
  Transmission Date: 20140414
  Serious: Yes (Death, Hospitalization, Other)
  Sender: FDA-Public Use
  Company Number: US-COVIDIEN/TYCO HEALTHCARE/MALLINCKRODT-T201204582

PATIENT
  Age: 43 Year
  Sex: Male

DRUGS (6)
  1. GABLOFEN [Suspect]
     Indication: MUSCLE SPASTICITY
     Dosage: 500 MCG/DAY
     Route: 037
     Dates: start: 20121004, end: 20121005
  2. GABLOFEN [Suspect]
     Dosage: 300 MCG/DAY
     Route: 037
     Dates: start: 20121005, end: 20121011
  3. GABLOFEN [Suspect]
     Dosage: 700 MCG/DAY
     Route: 037
     Dates: start: 20121011, end: 201210
  4. GABLOFEN [Suspect]
     Dosage: 600 MCG/DAY
     Route: 037
     Dates: start: 201210, end: 201210
  5. GABLOFEN [Suspect]
     Dosage: 550 MCG/DAY
     Route: 037
     Dates: start: 201210
  6. LIORESAL [Concomitant]
     Indication: MUSCLE SPASTICITY
     Dosage: 749 MCG/DAY
     Route: 037
     Dates: end: 20121004

REACTIONS (18)
  - Abasia [Recovered/Resolved]
  - Dysstasia [Unknown]
  - Nausea [Unknown]
  - Vomiting [Unknown]
  - Dizziness [Unknown]
  - Dysuria [Recovering/Resolving]
  - Bedridden [Recovered/Resolved]
  - Musculoskeletal stiffness [Unknown]
  - Malaise [Unknown]
  - Tinnitus [Unknown]
  - Asthenia [Unknown]
  - Sedation [Unknown]
  - Hypotonia [Recovering/Resolving]
  - Muscle spasticity [Recovering/Resolving]
  - Headache [Unknown]
  - Dyspnoea [Unknown]
  - Drug effect decreased [Unknown]
  - Device failure [Recovered/Resolved]
